FAERS Safety Report 13491767 (Version 1)
Quarter: 2017Q2

REPORT INFORMATION
  Report Type: Spontaneous
  Country: US (occurrence: US)
  Receive Date: 20170427
  Receipt Date: 20170427
  Transmission Date: 20170830
  Serious: No
  Sender: FDA-Public Use
  Company Number: US-ELI_LILLY_AND_COMPANY-US201704009988

PATIENT
  Sex: Female

DRUGS (2)
  1. HUMALOG [Suspect]
     Active Substance: INSULIN LISPRO
     Dosage: 24 U, OTHER
     Route: 058
  2. HUMALOG [Suspect]
     Active Substance: INSULIN LISPRO
     Indication: DIABETES MELLITUS
     Dosage: 24 U, OTHER
     Route: 058
     Dates: start: 2016

REACTIONS (6)
  - Back pain [Recovering/Resolving]
  - Maternal exposure before pregnancy [Unknown]
  - Incorrect dose administered [Recovered/Resolved]
  - Gait disturbance [Recovering/Resolving]
  - Blood glucose increased [Not Recovered/Not Resolved]
  - Maternal exposure during pregnancy [Unknown]
